FAERS Safety Report 26139590 (Version 1)
Quarter: 2025Q4

REPORT INFORMATION
  Report Type: Spontaneous
  Country: EU (occurrence: EU)
  Receive Date: 20251210
  Receipt Date: 20251210
  Transmission Date: 20260119
  Serious: Yes (Hospitalization)
  Sender: GALPHARM INTERNATIONAL
  Company Number: EU-MLMSERVICE-20251120-PI721717-00225-1

PATIENT
  Age: 21 Year
  Sex: Female
  Weight: 25.1 kg

DRUGS (3)
  1. MINOXIDIL [Suspect]
     Active Substance: MINOXIDIL
     Indication: Alopecia areata
     Dosage: 20MG/ML IN AN ETHANOL/PROPYLENE GLYCOL SOLUTION APPLIED TO THE AFFECTED AREAS OF THE SCALP 2 TIMES D
     Route: 061
  2. LEVONORGESTREL AND ETHINYL ESTRADIOL [Concomitant]
     Active Substance: ETHINYL ESTRADIOL\LEVONORGESTREL
     Indication: Contraception
     Dosage: UNKNOWN, UNKNOWN
     Route: 048
  3. LEVOTHYROXINE SODIUM [Concomitant]
     Active Substance: LEVOTHYROXINE SODIUM
     Indication: Autoimmune thyroiditis
     Dosage: 50, UG
     Route: 065

REACTIONS (2)
  - Mixed liver injury [Recovered/Resolved]
  - Hepatic failure [Recovered/Resolved]
